FAERS Safety Report 24433723 (Version 1)
Quarter: 2024Q4

REPORT INFORMATION
  Report Type: Other
  Country: DO (occurrence: DO)
  Receive Date: 20241014
  Receipt Date: 20241014
  Transmission Date: 20250115
  Serious: Yes (Other)
  Sender: TOLMAR
  Company Number: DO-TOLMAR, INC.-24DO052948

PATIENT
  Sex: Male

DRUGS (10)
  1. ELIGARD [Suspect]
     Active Substance: LEUPROLIDE ACETATE
     Indication: Prostate cancer
     Dosage: 22.5 MILLIGRAM, Q 3 MONTH
     Route: 058
     Dates: start: 20230817
  2. ELIGARD [Suspect]
     Active Substance: LEUPROLIDE ACETATE
     Indication: Prostate cancer
     Dosage: UNK
  3. SACUBITRIL\VALSARTAN [Concomitant]
     Active Substance: SACUBITRIL\VALSARTAN
     Indication: Hypertension
     Dosage: 200 MILLIGRAM
  4. VASTAREL [Concomitant]
     Active Substance: TRIMETAZIDINE DIHYDROCHLORIDE
     Indication: Hypertension
     Dosage: 80 UNK
  5. BISOPROLOL [Concomitant]
     Active Substance: BISOPROLOL\BISOPROLOL FUMARATE
     Indication: Hypertension
     Dosage: 2.5 MILLIGRAM
  6. AMLODIPINE [Concomitant]
     Active Substance: AMLODIPINE BESYLATE
     Indication: Hypertension
     Dosage: 5 MILLIGRAM
  7. JARINU [Concomitant]
     Indication: Hypertension
     Dosage: 10 MILLIGRAM
  8. PANTOPRAZOLE SODIUM [Concomitant]
     Active Substance: PANTOPRAZOLE SODIUM
     Indication: Product used for unknown indication
     Dosage: 40 MILLIGRAM
  9. COLMIBE [Concomitant]
     Indication: Blood cholesterol abnormal
     Dosage: 20/10 MG (ATORVASTATIN / EZETIMIBE)
  10. RADIATION THERAPY [Concomitant]
     Active Substance: RADIATION THERAPY
     Indication: Product used for unknown indication
     Dosage: UNK
     Dates: end: 2024

REACTIONS (4)
  - General physical health deterioration [Not Recovered/Not Resolved]
  - Decreased appetite [Not Recovered/Not Resolved]
  - Asthenia [Not Recovered/Not Resolved]
  - Malaise [Unknown]
